FAERS Safety Report 7109311-2 (Version None)
Quarter: 2010Q4

REPORT INFORMATION
  Report Type: 
  Country: None (occurrence: None)
  Receive Date: 20101117
  Receipt Date: 20101104
  Transmission Date: 20110411
  Serious: Yes (Hospitalization)
  Sender: FDA-Public Use
  Company Number: GB-MYLANLABS-2010S1019410

PATIENT
  Age: 27 Year
  Sex: Male

DRUGS (2)
  1. AMISULPRIDE [Interacting]
     Indication: SCHIZOPHRENIA
     Dates: start: 20000904, end: 20101004
  2. LAMOTRIGINE [Suspect]
     Indication: PRODUCT USED FOR UNKNOWN INDICATION

REACTIONS (5)
  - BLOOD PROLACTIN INCREASED [None]
  - CHEST PAIN [None]
  - DRUG INTERACTION [None]
  - NEUROLEPTIC MALIGNANT SYNDROME [None]
  - RASH [None]
